FAERS Safety Report 17155782 (Version 1)
Quarter: 2019Q4

REPORT INFORMATION
  Report Type: Spontaneous
  Country: US (occurrence: US)
  Receive Date: 20191215
  Receipt Date: 20191215
  Transmission Date: 20200122
  Serious: No
  Sender: FDA-Public Use
  Company Number: NVSC2019US022824

PATIENT
  Age: 5 Year
  Sex: Female

DRUGS (5)
  1. PHENIRAMINE [Suspect]
     Active Substance: PHENIRAMINE
     Indication: URTICARIA
     Dosage: 1 MG/KG
     Route: 042
  2. LORATADIN [Suspect]
     Active Substance: LORATADINE
     Indication: URTICARIA
     Dosage: 4 MG
     Route: 065
  3. METHYLPREDNISOLONE. [Suspect]
     Active Substance: METHYLPREDNISOLONE
     Indication: URTICARIA
     Dosage: 1 MG/KG
     Route: 065
  4. RANITIDINE. [Suspect]
     Active Substance: RANITIDINE
     Indication: URTICARIA
     Dosage: 1 MG/KG
     Route: 065
  5. MONTELUKAST [Suspect]
     Active Substance: MONTELUKAST SODIUM
     Indication: URTICARIA
     Dosage: 5 MG
     Route: 065

REACTIONS (1)
  - Drug ineffective [Unknown]
